FAERS Safety Report 6337569-6 (Version None)
Quarter: 2009Q3

REPORT INFORMATION
  Report Type: 
  Country: None (occurrence: None)
  Receive Date: 20090902
  Receipt Date: 20090825
  Transmission Date: 20100115
  Serious: Yes (Hospitalization)
  Sender: FDA-Public Use
  Company Number: US-ROCHE-636970

PATIENT
  Sex: Female

DRUGS (8)
  1. MYCOPHENOLATE MOFETIL [Suspect]
     Indication: SYSTEMIC LUPUS ERYTHEMATOSUS
     Route: 065
     Dates: start: 20090109, end: 20090508
  2. BLINDED ABATACEPT [Suspect]
     Indication: SYSTEMIC LUPUS ERYTHEMATOSUS
     Route: 042
     Dates: start: 20090109, end: 20090508
  3. PREDNISONE [Concomitant]
     Dates: start: 20090109, end: 20090508
  4. PLAQUENIL [Concomitant]
  5. LORTAB [Concomitant]
  6. ZOFRAN [Concomitant]
  7. NORVASC [Concomitant]
  8. LASIX [Concomitant]

REACTIONS (4)
  - ASCITES [None]
  - HISTOPLASMOSIS DISSEMINATED [None]
  - PLEURAL EFFUSION [None]
  - RENAL FAILURE CHRONIC [None]
